FAERS Safety Report 10746684 (Version 2)
Quarter: 2015Q3

REPORT INFORMATION
  Report Type: Report from Study
  Country: US (occurrence: US)
  Receive Date: 20150128
  Receipt Date: 20150710
  Transmission Date: 20151125
  Serious: Yes (Hospitalization)
  Sender: FDA-Public Use
  Company Number: US-BIOGENIDEC-2015BI010660

PATIENT
  Age: 58 Year
  Sex: Female

DRUGS (13)
  1. FLUVIRIN NOS [Concomitant]
     Active Substance: INFLUENZA VIRUS VACCINE
     Dates: start: 20140929
  2. VENTOLIN HFA [Concomitant]
     Active Substance: ALBUTEROL SULFATE
     Dates: start: 20141016
  3. AVONEX [Suspect]
     Active Substance: INTERFERON BETA-1A
     Indication: MULTIPLE SCLEROSIS
     Route: 030
     Dates: start: 20110907
  4. MEDROXYPROGESTERONE [Concomitant]
     Active Substance: MEDROXYPROGESTERONE
     Dates: start: 20141028
  5. CYMBALTA [Concomitant]
     Active Substance: DULOXETINE HYDROCHLORIDE
  6. OXYCODONE/ACETAMINOPHEN [Concomitant]
     Active Substance: ACETAMINOPHEN\OXYCODONE HYDROCHLORIDE
     Dates: start: 20141129
  7. ZOPIDEM [Concomitant]
     Dates: start: 20141112
  8. CYMBALTA [Concomitant]
     Active Substance: DULOXETINE HYDROCHLORIDE
  9. DOCQLACE [Concomitant]
     Active Substance: DOCUSATE SODIUM
  10. GABAPENTIN. [Concomitant]
     Active Substance: GABAPENTIN
     Dates: start: 20110821
  11. NORTRIPTYLINE [Concomitant]
     Active Substance: NORTRIPTYLINE
  12. ESTRADIOL. [Concomitant]
     Active Substance: ESTRADIOL
     Dates: start: 20140707
  13. MEDROXYPROGESTERONE [Concomitant]
     Active Substance: MEDROXYPROGESTERONE

REACTIONS (1)
  - Mesothelioma [Recovered/Resolved with Sequelae]

NARRATIVE: CASE EVENT DATE: 201501
